FAERS Safety Report 13271046 (Version 1)
Quarter: 2017Q1

REPORT INFORMATION
  Report Type: Spontaneous
  Country: US (occurrence: US)
  Receive Date: 20170226
  Receipt Date: 20170226
  Transmission Date: 20170428
  Serious: No
  Sender: FDA-Public Use
  Company Number: US-CELGENEUS-USA-2017026073

PATIENT
  Sex: Male
  Weight: 90.8 kg

DRUGS (1)
  1. THALOMID [Suspect]
     Active Substance: THALIDOMIDE
     Indication: PLASMA CELL MYELOMA
     Dosage: 100 MG (1 CAPSULE EVERY EVENING)
     Route: 048
     Dates: start: 20170119

REACTIONS (1)
  - Nasopharyngitis [Unknown]
